FAERS Safety Report 9395912 (Version 1)
Quarter: 2013Q3

REPORT INFORMATION
  Report Type: Spontaneous
  Country: FR (occurrence: FR)
  Receive Date: 20130711
  Receipt Date: 20130711
  Transmission Date: 20140515
  Serious: Yes (Death, Hospitalization)
  Sender: FDA-Public Use
  Company Number: FR-ASTRAZENECA-2013SE51120

PATIENT
  Age: 33597 Day
  Sex: Female

DRUGS (8)
  1. INEXIUM [Suspect]
     Route: 048
     Dates: end: 20130618
  2. PARACETAMOL [Suspect]
     Route: 048
     Dates: end: 20130618
  3. METFORMIN [Suspect]
     Indication: TYPE 2 DIABETES MELLITUS
     Route: 048
     Dates: end: 20130618
  4. DIFFU K [Suspect]
     Indication: HYPOKALAEMIA
     Route: 048
     Dates: end: 20130618
  5. EFFEXOR SR [Suspect]
     Route: 048
     Dates: end: 20130618
  6. HYZAAR [Suspect]
     Indication: HYPERTENSION
     Dosage: 50 MG / 12.5 MG PER DOSE, ONE DOSE PER DAY
     Route: 048
     Dates: end: 20130618
  7. LASILIX [Suspect]
     Route: 048
     Dates: end: 20130618
  8. LANSOYL [Suspect]
     Indication: CONSTIPATION
     Route: 048
     Dates: end: 20130618

REACTIONS (9)
  - Dehydration [Fatal]
  - Renal failure acute [Fatal]
  - Hyperkalaemia [Fatal]
  - Muscle spasms [Fatal]
  - Somnolence [Fatal]
  - Lactic acidosis [Fatal]
  - Tachycardia [None]
  - Hypertension [None]
  - Thirst [None]
